FAERS Safety Report 9893591 (Version 1)
Quarter: 2014Q1

REPORT INFORMATION
  Report Type: Report from Study
  Country: US (occurrence: US)
  Receive Date: 20140213
  Receipt Date: 20140213
  Transmission Date: 20141002
  Serious: No
  Sender: FDA-Public Use
  Company Number: US-009507513-1402USA004992

PATIENT
  Age: 50 Year
  Sex: Female

DRUGS (2)
  1. REBETOL [Suspect]
     Indication: HEPATITIS C VIRUS TEST POSITIVE
     Dosage: 1000 OR 1200 MG DAILY
     Route: 048
  2. PEGINTRON [Suspect]
     Indication: HEPATITIS C VIRUS TEST POSITIVE
     Dosage: 3 MILLION UNITS 3 TIMES WEEKLY FOR 48 WEEKS

REACTIONS (2)
  - Hepatitis C [Unknown]
  - Drug ineffective [Unknown]
